FAERS Safety Report 14248154 (Version 3)
Quarter: 2017Q4

REPORT INFORMATION
  Report Type: Report from Study
  Country: FR (occurrence: FR)
  Receive Date: 20171204
  Receipt Date: 20171227
  Transmission Date: 20180321
  Serious: Yes (Life-Threatening, Hospitalization, Other)
  Sender: FDA-Public Use
  Company Number: FR-PFIZER INC-2017513288

PATIENT
  Age: 11 Year
  Sex: Female

DRUGS (17)
  1. DEXAMETHASONE. [Suspect]
     Active Substance: DEXAMETHASONE
     Indication: ACUTE LYMPHOCYTIC LEUKAEMIA
     Dosage: 700 MG, UNK
     Route: 048
     Dates: start: 20170825, end: 20170831
  2. PEGASPARGASE [Suspect]
     Active Substance: PEGASPARGASE
     Dosage: 47 MG, UNK
     Route: 042
  3. CYCLOPHOSPHAMIDE. [Suspect]
     Active Substance: CYCLOPHOSPHAMIDE
     Indication: ACUTE LYMPHOCYTIC LEUKAEMIA
     Dosage: 1060 MG, 1X/DAY:QD
     Route: 042
     Dates: start: 20170922, end: 20170922
  4. ARACYTINE [Suspect]
     Active Substance: CYTARABINE
     Indication: ACUTE LYMPHOCYTIC LEUKAEMIA
     Dosage: 6 MG, 1X/DAY:QD
     Route: 042
     Dates: start: 20170824, end: 20170924
  5. ARACYTINE [Suspect]
     Active Substance: CYTARABINE
     Dosage: 6 MG, ON DAY 31
     Route: 037
  6. VINCRISTINE SULFATE. [Suspect]
     Active Substance: VINCRISTINE SULFATE
     Indication: ACUTE LYMPHOCYTIC LEUKAEMIA
     Dosage: 32 MG, 1X/DAY:QD
     Route: 037
     Dates: start: 20170915, end: 20170915
  7. VINCRISTINE SULFATE. [Suspect]
     Active Substance: VINCRISTINE SULFATE
     Dosage: 1.53 MG, 1X/DAY:QD
     Route: 037
     Dates: start: 20170825, end: 20170908
  8. DEXAMETHASONE. [Suspect]
     Active Substance: DEXAMETHASONE
     Dosage: 7000 MG, UNK
     Route: 048
     Dates: start: 20170908, end: 20170914
  9. ARACYTINE [Suspect]
     Active Substance: CYTARABINE
     Dosage: 30 MG, 1X/DAY:QD
     Route: 042
     Dates: start: 20170828, end: 20170828
  10. METHOTREXATE SODIUM. [Suspect]
     Active Substance: METHOTREXATE SODIUM
     Indication: ACUTE LYMPHOCYTIC LEUKAEMIA
     Dosage: 15 MG, 1X/DAY:QD
     Route: 037
     Dates: start: 20170828, end: 20170924
  11. ARACYTINE [Suspect]
     Active Substance: CYTARABINE
     Dosage: 366 MG, UNK
     Route: 042
     Dates: start: 20170924, end: 20170927
  12. DOXORUBICIN HCL [Suspect]
     Active Substance: DOXORUBICIN HYDROCHLORIDE
     Dosage: 32 MG, 1X/DAY:QD
     Route: 042
     Dates: start: 20170915, end: 20170915
  13. THIOGUANINE [Suspect]
     Active Substance: THIOGUANINE
     Indication: ACUTE LYMPHOCYTIC LEUKAEMIA
     Dosage: 780 MG, UNK
     Route: 042
     Dates: start: 20170922, end: 20171005
  14. PEGASPARGASE [Suspect]
     Active Substance: PEGASPARGASE
     Indication: ACUTE LYMPHOCYTIC LEUKAEMIA
     Dosage: 1275.0 IU, UNK
     Route: 042
     Dates: start: 20170828, end: 20170828
  15. ARACYTINE [Suspect]
     Active Substance: CYTARABINE
     Dosage: 318 MG, UNK
     Dates: start: 20171001, end: 20171004
  16. ARACYTINE [Suspect]
     Active Substance: CYTARABINE
     Dosage: 46 MG, ON DAY 31
     Route: 042
  17. DOXORUBICIN HCL [Suspect]
     Active Substance: DOXORUBICIN HYDROCHLORIDE
     Indication: ACUTE LYMPHOCYTIC LEUKAEMIA
     Dosage: 30.6 MG, 1X/DAY:QD
     Route: 042
     Dates: start: 20170825, end: 20170908

REACTIONS (4)
  - Quadriplegia [Recovered/Resolved with Sequelae]
  - Neurotoxicity [Recovered/Resolved with Sequelae]
  - Toxicity to various agents [Recovered/Resolved with Sequelae]
  - Ischaemic stroke [Recovered/Resolved with Sequelae]

NARRATIVE: CASE EVENT DATE: 20171006
